FAERS Safety Report 5063555-2 (Version None)
Quarter: 2006Q3

REPORT INFORMATION
  Report Type: 
  Country: None (occurrence: None)
  Receive Date: 20060727
  Receipt Date: 20050407
  Transmission Date: 20061208
  Serious: Yes (Other)
  Sender: FDA-Public Use
  Company Number: 2005UW05398

PATIENT
  Age: 83 Year
  Sex: Female
  Weight: 58.2 kg

DRUGS (3)
  1. ARIMIDEX [Suspect]
     Indication: BREAST CANCER
     Route: 048
     Dates: start: 20020101
  2. NOLVADEX [Concomitant]
     Route: 048
     Dates: start: 19850101
  3. NOLVADEX [Concomitant]
     Route: 048
     Dates: start: 19990101

REACTIONS (8)
  - ARTHRALGIA [None]
  - ARTHROPATHY [None]
  - ASTHENIA [None]
  - BONE PAIN [None]
  - FALL [None]
  - FOOT FRACTURE [None]
  - LIMB INJURY [None]
  - MOBILITY DECREASED [None]
